FAERS Safety Report 8281979-7 (Version None)
Quarter: 2012Q2

REPORT INFORMATION
  Report Type: 
  Country: None (occurrence: None)
  Receive Date: 20120410
  Receipt Date: 20120322
  Transmission Date: 20120825
  Serious: Yes (Other)
  Sender: FDA-Public Use
  Company Number: 20120168

PATIENT
  Age: 63 Year
  Sex: Male

DRUGS (1)
  1. NITROGLYCERIN [Suspect]

REACTIONS (3)
  - CONDITION AGGRAVATED [None]
  - POSTERIOR REVERSIBLE ENCEPHALOPATHY SYNDROME [None]
  - BLINDNESS [None]
